FAERS Safety Report 20757450 (Version 1)
Quarter: 2022Q2

REPORT INFORMATION
  Report Type: Spontaneous
  Country: US (occurrence: US)
  Receive Date: 20220427
  Receipt Date: 20220427
  Transmission Date: 20220720
  Serious: No
  Sender: FDA-Public Use
  Company Number: US-PFIZER INC-202200616678

PATIENT
  Age: 78 Year
  Sex: Male
  Weight: 95.25 kg

DRUGS (5)
  1. PAXLOVID [Suspect]
     Active Substance: NIRMATRELVIR\RITONAVIR
     Indication: COVID-19 treatment
     Dosage: [PF-07321332 300 MG]/[RITONAVIR 100 MG]; 2X/DAY
     Dates: start: 20220421
  2. TADALAFIL [Concomitant]
     Active Substance: TADALAFIL
     Indication: Dysuria
     Dosage: 5 MG, 1X/DAY
  3. OXYBUTYNIN [Concomitant]
     Active Substance: OXYBUTYNIN
     Indication: Prostatomegaly
     Dosage: 5 MG, 1X/DAY
  4. ACYCLOVIR [Concomitant]
     Active Substance: ACYCLOVIR
     Indication: Neoplasm malignant
     Dosage: 400 MG, 2X/DAY
  5. MINERALS\VITAMINS [Concomitant]
     Active Substance: MINERALS\VITAMINS
     Indication: Macular degeneration
     Dosage: UNK

REACTIONS (2)
  - Pollakiuria [Unknown]
  - Off label use [Unknown]

NARRATIVE: CASE EVENT DATE: 20220421
